FAERS Safety Report 8881245 (Version 2)
Quarter: 2012Q4

REPORT INFORMATION
  Report Type: 
  Country: SE (occurrence: SE)
  Receive Date: 20121031
  Receipt Date: 20121126
  Transmission Date: 20130627
  Serious: Yes (Life-Threatening)
  Sender: FDA-Public Use
  Company Number: SE-ASTRAZENECA-2012SE81813

PATIENT
  Sex: Female

DRUGS (15)
  1. BRILIQUE [Suspect]
     Route: 048
     Dates: start: 20120802, end: 20120921
  2. RAMIPRIL [Suspect]
     Route: 048
     Dates: start: 2000, end: 20120921
  3. LIPITOR [Concomitant]
     Route: 048
  4. LEVAXIN [Concomitant]
     Route: 048
  5. OMEPRAZOL [Concomitant]
  6. METFORMIN [Concomitant]
  7. NITROGLYCERIN [Concomitant]
  8. BISOPROLOL [Concomitant]
  9. FLUOXETIN [Concomitant]
  10. CALCICHEW-D3 [Concomitant]
     Dosage: 1000 MG/800 IE
     Route: 048
  11. FURIX [Concomitant]
     Route: 048
  12. HUMULIN NPH [Concomitant]
  13. IMDUR [Concomitant]
  14. TROMBYL [Concomitant]
     Route: 048
  15. INSULIN [Concomitant]
     Indication: TYPE 2 DIABETES MELLITUS

REACTIONS (2)
  - Angioedema [Recovered/Resolved]
  - Tongue oedema [Recovered/Resolved]
